FAERS Safety Report 5079232-8 (Version None)
Quarter: 2006Q3

REPORT INFORMATION
  Report Type: 
  Country: None (occurrence: None)
  Receive Date: 20060808
  Receipt Date: 20060725
  Transmission Date: 20061208
  Serious: Yes (Hospitalization)
  Sender: FDA-Public Use
  Company Number: 06-000719

PATIENT
  Age: 58 Year
  Sex: Female

DRUGS (2)
  1. DOVONEX [Suspect]
  2. TACLONEX(CALCIPOTRIENE, BETAMETHASONE DIPROPIONATE) OINTMENT, .005/0.0 [Suspect]

REACTIONS (1)
  - DERMATITIS [None]
